FAERS Safety Report 9510553 (Version 2)
Quarter: 2013Q4

REPORT INFORMATION
  Report Type: Spontaneous
  Country: US (occurrence: US)
  Receive Date: 20130909
  Receipt Date: 20131008
  Transmission Date: 20140711
  Serious: Yes (Hospitalization)
  Sender: FDA-Public Use
  Company Number: PHEH2013US018773

PATIENT
  Sex: Female

DRUGS (1)
  1. EXFORGE HCT [Suspect]
     Dosage: 320/10/25 MG, QD
     Route: 048

REACTIONS (3)
  - Blood pressure increased [Unknown]
  - Malaise [Unknown]
  - Condition aggravated [Unknown]
